FAERS Safety Report 23952566 (Version 1)
Quarter: 2024Q2

REPORT INFORMATION
  Report Type: Spontaneous
  Country: US (occurrence: US)
  Receive Date: 20240607
  Receipt Date: 20240607
  Transmission Date: 20240716
  Serious: No
  Sender: FDA-Public Use
  Company Number: US-UPSHER-SMITH LABORATORIES, LLC-2023USL01016

PATIENT

DRUGS (1)
  1. NYAMYC [Suspect]
     Active Substance: NYSTATIN
     Dosage: UNK, UNDER BREAST AREA
     Route: 061

REACTIONS (2)
  - Dysgeusia [Not Recovered/Not Resolved]
  - Accidental exposure to product [Not Recovered/Not Resolved]

NARRATIVE: CASE EVENT DATE: 20231201
